FAERS Safety Report 9319552 (Version 6)
Quarter: 2013Q3

REPORT INFORMATION
  Report Type: Spontaneous
  Country: US (occurrence: US)
  Receive Date: 20130530
  Receipt Date: 20130927
  Transmission Date: 20140515
  Serious: Yes (Hospitalization)
  Sender: FDA-Public Use
  Company Number: US-GLAXOSMITHKLINE-A1002155A

PATIENT
  Age: 44 Year
  Sex: Female
  Weight: 99.5 kg

DRUGS (1)
  1. FLOLAN [Suspect]
     Indication: COR PULMONALE CHRONIC
     Dosage: 37NGKM CONTINUOUS
     Route: 065
     Dates: start: 20050321

REACTIONS (7)
  - Hospitalisation [Recovered/Resolved]
  - Pneumonia [Recovered/Resolved]
  - Lung transplant [Unknown]
  - Fluid retention [Recovered/Resolved]
  - Dyspnoea [Recovered/Resolved]
  - Catheter site pain [Recovered/Resolved]
  - Arthralgia [Recovered/Resolved]
